FAERS Safety Report 18668650 (Version 1)
Quarter: 2020Q4

REPORT INFORMATION
  Report Type: Spontaneous
  Country: FR (occurrence: FR)
  Receive Date: 20201228
  Receipt Date: 20201228
  Transmission Date: 20210114
  Serious: Yes (Congenital Anomaly)
  Sender: FDA-Public Use
  Company Number: FR-B.I. PHARMACEUTICALS,INC./RIDGEFIELD-2020-BI-070873

PATIENT
  Age: 0 Year
  Sex: Female
  Weight: 2.85 kg

DRUGS (2)
  1. LOVENOX [Suspect]
     Active Substance: ENOXAPARIN SODIUM
     Indication: FACTOR II MUTATION
     Route: 064
     Dates: start: 20180110, end: 20180410
  2. CATAPRESSAN [Suspect]
     Active Substance: CLONIDINE
     Indication: HYPERTENSION
     Route: 064
     Dates: start: 20180110

REACTIONS (1)
  - Congenital renal cyst [Recovering/Resolving]

NARRATIVE: CASE EVENT DATE: 20180110
